FAERS Safety Report 13126321 (Version 1)
Quarter: 2017Q1

REPORT INFORMATION
  Report Type: Spontaneous
  Country: US (occurrence: US)
  Receive Date: 20170118
  Receipt Date: 20170118
  Transmission Date: 20170428
  Serious: No
  Sender: FDA-Public Use
  Company Number: US-PURACAP PHARMACEUTICAL LLC-2017EPC00005

PATIENT
  Age: 76 Year
  Sex: Male
  Weight: 82.99 kg

DRUGS (13)
  1. DULERA [Concomitant]
     Active Substance: FORMOTEROL FUMARATE DIHYDRATE\MOMETASONE FUROATE
  2. METFORMIN HCL [Concomitant]
     Active Substance: METFORMIN HYDROCHLORIDE
  3. SPECTRAVITAMINS FOR AGE 50 AND OVER [Concomitant]
  4. FLOMAX [Concomitant]
     Active Substance: TAMSULOSIN HYDROCHLORIDE
  5. ALTACE [Concomitant]
     Active Substance: RAMIPRIL
  6. NIAGEN [Concomitant]
  7. ASPIRIN. [Concomitant]
     Active Substance: ASPIRIN
  8. PROPRANOLOL ER [Concomitant]
  9. PROBIOTIC [Concomitant]
     Active Substance: PROBIOTICS NOS
  10. TARCEVA [Concomitant]
     Active Substance: ERLOTINIB HYDROCHLORIDE
     Indication: CHEMOTHERAPY
  11. DOXYCYCLINE HYCLATE. [Suspect]
     Active Substance: DOXYCYCLINE HYCLATE
     Indication: PROPHYLAXIS
     Dosage: UNK UNK, 1X/DAY
     Dates: start: 2014
  12. FINASTERIDE. [Concomitant]
     Active Substance: FINASTERIDE
  13. UNSPECIFIED LOTIONS [Concomitant]

REACTIONS (1)
  - Blood urine present [Not Recovered/Not Resolved]

NARRATIVE: CASE EVENT DATE: 2016
